FAERS Safety Report 20067327 (Version 1)
Quarter: 2021Q4

REPORT INFORMATION
  Report Type: Other
  Country: CN (occurrence: None)
  Receive Date: 20211115
  Receipt Date: 20211115
  Transmission Date: 20220303
  Serious: Yes (Other)
  Sender: FDA-Public Use
  Company Number: CN-ROCHE-2951203

PATIENT

DRUGS (2)
  1. CAPECITABINE [Suspect]
     Active Substance: CAPECITABINE
     Indication: Gastric cancer
     Dosage: DAY 1 TO DAY 14
     Route: 048
  2. OXALIPLATIN [Suspect]
     Active Substance: OXALIPLATIN
     Indication: Gastric cancer
     Dosage: ADMINISTRATED ON THE FIRST DAY AND REPEATED ONCE IN WEEKS 3 TO 4.
     Route: 042

REACTIONS (6)
  - Neurotoxicity [Unknown]
  - Haematotoxicity [Unknown]
  - Hepatic function abnormal [Unknown]
  - Renal impairment [Unknown]
  - Gastrointestinal disorder [Unknown]
  - Myelosuppression [Unknown]
